FAERS Safety Report 24015839 (Version 1)
Quarter: 2024Q2

REPORT INFORMATION
  Report Type: Spontaneous
  Country: CN (occurrence: CN)
  Receive Date: 20240626
  Receipt Date: 20240626
  Transmission Date: 20240716
  Serious: Yes (Hospitalization, Other)
  Sender: FDA-Public Use
  Company Number: None

PATIENT
  Age: 70 Year
  Sex: Male
  Weight: 64 kg

DRUGS (10)
  1. CYCLOPHOSPHAMIDE [Suspect]
     Active Substance: CYCLOPHOSPHAMIDE
     Indication: Diffuse large B-cell lymphoma
     Dosage: 1.05 G, ONE TIME IN ONE DAY, DILUTED WITH 500 ML OF SODIUM CHLORIDE
     Route: 041
     Dates: start: 20240517, end: 20240517
  2. SODIUM CHLORIDE [Suspect]
     Active Substance: SODIUM CHLORIDE
     Indication: Medication dilution
     Dosage: 500 ML, ONE TIME IN ONE DAY, USED TO DILUTE 1.05 G OF CYCLOPHOSPHAMIDE
     Route: 041
     Dates: start: 20240517, end: 20240517
  3. SODIUM CHLORIDE [Suspect]
     Active Substance: SODIUM CHLORIDE
     Dosage: 90 ML, ONE TIME IN ONE DAY, (DRIP RATE 50 ML/H), USED TO DILUTE 100 MG OF RITUXIMAB
     Route: 041
     Dates: start: 20240516, end: 20240516
  4. SODIUM CHLORIDE [Suspect]
     Active Substance: SODIUM CHLORIDE
     Dosage: 500 ML, ONE TIME IN ONE DAY, (DRIP RATE 100 ML/H), USED TO DILUTE 560 MG OF RITUXIMAB
     Route: 041
     Dates: start: 20240516, end: 20240516
  5. SODIUM CHLORIDE [Suspect]
     Active Substance: SODIUM CHLORIDE
     Dosage: 250 ML, ONE TIME IN ONE DAY, USED TO DILUTE 70 MG OF DOXORUBICIN HYDROCHLORIDE
     Route: 041
     Dates: start: 20240517, end: 20240517
  6. SODIUM CHLORIDE [Suspect]
     Active Substance: SODIUM CHLORIDE
     Dosage: 20 ML, ONE TIME IN ONE DAY, USED TO DILUTE 1.6 MG OF VINCRISTINE SULFATE
     Route: 041
     Dates: start: 20240517, end: 20240517
  7. RITUXIMAB [Suspect]
     Active Substance: RITUXIMAB
     Indication: Diffuse large B-cell lymphoma
     Dosage: 100 MG, ONE TIME IN ONE DAY, (DRIP RATE 50 ML/H), DILUTED WITH 90 ML OF SODIUM CHLORIDE
     Route: 041
     Dates: start: 20240516, end: 20240516
  8. RITUXIMAB [Suspect]
     Active Substance: RITUXIMAB
     Dosage: 560 MG, ONE TIME IN ONE DAY (DRIP RATE 100 ML/H), DILUTED WITH 500 ML OF SODIUM CHLORIDE
     Route: 041
     Dates: start: 20240516, end: 20240516
  9. DOXORUBICIN HYDROCHLORIDE [Suspect]
     Active Substance: DOXORUBICIN HYDROCHLORIDE
     Indication: Diffuse large B-cell lymphoma
     Dosage: 70 MG, ONE TIME IN ONE DAY, DILUTED WITH 250 ML OF SODIUM CHLORIDE
     Route: 041
     Dates: start: 20240517, end: 20240517
  10. VINCRISTINE SULFATE [Suspect]
     Active Substance: VINCRISTINE SULFATE
     Indication: Diffuse large B-cell lymphoma
     Dosage: 1.6 MG, ONE TIME IN ONE DAY, DILUTED WITH 20 ML OF SODIUM CHLORIDE
     Route: 041
     Dates: start: 20240517, end: 20240517

REACTIONS (2)
  - Myelosuppression [Recovering/Resolving]
  - Diffuse large B-cell lymphoma recurrent [Unknown]

NARRATIVE: CASE EVENT DATE: 20240527
